FAERS Safety Report 18495600 (Version 1)
Quarter: 2020Q4

REPORT INFORMATION
  Report Type: Spontaneous
  Country: US (occurrence: US)
  Receive Date: 20201112
  Receipt Date: 20201112
  Transmission Date: 20210114
  Serious: No
  Sender: FDA-Public Use
  Company Number: US-TEVA-2020-US-1847081

PATIENT
  Sex: Male

DRUGS (1)
  1. CYCLOSPORIN TEVA [Suspect]
     Active Substance: CYCLOSPORINE
     Route: 065

REACTIONS (4)
  - Nausea [Unknown]
  - Product dispensing error [Unknown]
  - Product odour abnormal [Unknown]
  - Illness [Unknown]

NARRATIVE: CASE EVENT DATE: 2020
